FAERS Safety Report 4936911-8 (Version None)
Quarter: 2006Q1

REPORT INFORMATION
  Report Type: 
  Country: None (occurrence: None)
  Receive Date: 20060307
  Receipt Date: 20020516
  Transmission Date: 20060701
  Serious: Yes (Disabling, Other)
  Sender: FDA-Public Use
  Company Number: US-MERCK-0205USA02133

PATIENT
  Age: 54 Year
  Sex: Female
  Weight: 75 kg

DRUGS (8)
  1. VIOXX [Suspect]
     Indication: ARTHRITIS
     Route: 048
  2. VIOXX [Suspect]
     Indication: PAIN
     Route: 048
  3. PREMARIN [Concomitant]
     Route: 065
  4. TEQUIN [Concomitant]
     Route: 065
  5. FLONASE [Concomitant]
     Route: 065
  6. ALLEGRA [Concomitant]
     Route: 065
  7. VALIUM [Concomitant]
     Route: 065
  8. PAXIL [Concomitant]
     Route: 065

REACTIONS (19)
  - ACCIDENT AT WORK [None]
  - ANGINA PECTORIS [None]
  - ARTERIOSPASM CORONARY [None]
  - BACK INJURY [None]
  - CARDIAC FAILURE [None]
  - CEREBROVASCULAR ACCIDENT [None]
  - CHEST PAIN [None]
  - GASTRIC DISORDER [None]
  - HEART RATE ABNORMAL [None]
  - HEPATOCELLULAR DAMAGE [None]
  - HYPERTENSION [None]
  - MYOCARDIAL INFARCTION [None]
  - OEDEMA PERIPHERAL [None]
  - ORAL SOFT TISSUE DISORDER [None]
  - PRESCRIBED OVERDOSE [None]
  - RENAL DISORDER [None]
  - SPINE MALFORMATION [None]
  - THROMBOSIS [None]
  - ULCER [None]
